FAERS Safety Report 19740484 (Version 1)
Quarter: 2021Q3

REPORT INFORMATION
  Report Type: Spontaneous
  Country: CH (occurrence: CH)
  Receive Date: 20210824
  Receipt Date: 20210824
  Transmission Date: 20211014
  Serious: Yes (Other)
  Sender: FDA-Public Use
  Company Number: NVSC2021CH187487

PATIENT
  Age: 71 Year
  Sex: Female

DRUGS (3)
  1. ACLASTA [Suspect]
     Active Substance: ZOLEDRONIC ACID
     Indication: OSTEOPOROSIS
     Dosage: 5 MG, CYCLIC
     Route: 042
     Dates: start: 20180205
  2. KALCIPOS D3 [Concomitant]
     Active Substance: CALCIUM CARBONATE\CHOLECALCIFEROL
     Indication: PRODUCT USED FOR UNKNOWN INDICATION
     Dosage: UNK (500/800)
     Route: 065
  3. ACLASTA [Suspect]
     Active Substance: ZOLEDRONIC ACID
     Dosage: 5 MG, CYCLIC
     Route: 042
     Dates: start: 20200312, end: 20200312

REACTIONS (2)
  - Lichen planopilaris [Unknown]
  - Pruritus [Unknown]

NARRATIVE: CASE EVENT DATE: 202006
